FAERS Safety Report 6915954-9 (Version None)
Quarter: 2010Q3

REPORT INFORMATION
  Report Type: 
  Country: None (occurrence: None)
  Receive Date: 20100810
  Receipt Date: 20100709
  Transmission Date: 20110219
  Serious: No
  Sender: FDA-Public Use
  Company Number: US-BAYER-201018088BCC

PATIENT
  Age: 23 Year
  Sex: Male
  Weight: 118 kg

DRUGS (1)
  1. ALEVE (CAPLET) [Suspect]
     Indication: ACNE
     Dosage: TOTAL DAILY DOSE: 440 MG  UNIT DOSE: 220 MG
     Route: 048
     Dates: start: 20100707

REACTIONS (3)
  - HYPERSENSITIVITY [None]
  - HYPOAESTHESIA FACIAL [None]
  - SWELLING FACE [None]
